FAERS Safety Report 9009405 (Version 1)
Quarter: 2013Q1

REPORT INFORMATION
  Report Type: Spontaneous
  Country: US (occurrence: US)
  Receive Date: 20130111
  Receipt Date: 20130111
  Transmission Date: 20140127
  Serious: Yes (Other)
  Sender: FDA-Public Use
  Company Number: US-009507513-0902USA00737

PATIENT
  Age: 13 Year
  Sex: Female
  Weight: 59.87 kg

DRUGS (2)
  1. SINGULAIR [Suspect]
     Indication: RHINITIS ALLERGIC
     Dosage: 10 MG, QD
     Route: 048
     Dates: start: 20080301, end: 20080801
  2. SINGULAIR [Suspect]
     Indication: ASTHMA

REACTIONS (3)
  - Anxiety [Unknown]
  - Morbid thoughts [Unknown]
  - Overdose [Unknown]
